FAERS Safety Report 24020326 (Version 5)
Quarter: 2024Q4

REPORT INFORMATION
  Report Type: Spontaneous
  Country: US (occurrence: US)
  Receive Date: 20240627
  Receipt Date: 20241023
  Transmission Date: 20250114
  Serious: No
  Sender: PFIZER
  Company Number: US-PFIZER INC-202400197917

PATIENT
  Age: 12 Year
  Sex: Female
  Weight: 43.09 kg

DRUGS (2)
  1. GENOTROPIN [Suspect]
     Active Substance: SOMATROPIN
     Indication: Turner^s syndrome
     Dosage: 1.4 MG EVERY NIGHT
  2. ESTRADIOL [Concomitant]
     Active Substance: ESTRADIOL
     Dosage: CHANGES TWICE A WEEK

REACTIONS (5)
  - Poor quality device used [Unknown]
  - Incorrect dose administered [Unknown]
  - Device operational issue [Unknown]
  - Expired device used [Unknown]
  - Drug dose omission by device [Unknown]

NARRATIVE: CASE EVENT DATE: 20240101
